FAERS Safety Report 5140980-2 (Version None)
Quarter: 2006Q4

REPORT INFORMATION
  Report Type: 
  Country: None (occurrence: None)
  Receive Date: 20061027
  Receipt Date: 20061027
  Transmission Date: 20070319
  Serious: Yes (Hospitalization)
  Sender: FDA-Public Use
  Company Number: None

PATIENT
  Age: 62 Year
  Sex: Male
  Weight: 136.0791 kg

DRUGS (2)
  1. MARCAINE [Suspect]
     Indication: ANAESTHESIA
     Dosage: 2 ML ONCE ID
     Route: 023
     Dates: start: 20060906, end: 20060906
  2. DEPO-MEDROL [Suspect]
     Indication: BACK PAIN
     Dosage: 5 ML ONCE EPIDURAL
     Route: 008
     Dates: start: 20060906, end: 20060906

REACTIONS (8)
  - ASTHENIA [None]
  - BLOOD PRESSURE DECREASED [None]
  - DIZZINESS [None]
  - DRUG HYPERSENSITIVITY [None]
  - EYE PAIN [None]
  - FEELING HOT [None]
  - HEART RATE INCREASED [None]
  - NAUSEA [None]
